FAERS Safety Report 5070297-6 (Version None)
Quarter: 2006Q3

REPORT INFORMATION
  Report Type: 
  Country: None (occurrence: None)
  Receive Date: 20060802
  Receipt Date: 20060720
  Transmission Date: 20061208
  Serious: Yes (Hospitalization)
  Sender: FDA-Public Use
  Company Number: TRP_0817_2006

PATIENT
  Age: 45 Year
  Sex: Female
  Weight: 127.0072 kg

DRUGS (10)
  1. RIBASPHERE [Suspect]
     Indication: HEPATITIS C
     Dosage: DF PO
     Route: 048
     Dates: start: 20051103
  2. PEG-INTRON [Suspect]
     Indication: HEPATITIS C
     Dosage: DF SC
     Route: 058
     Dates: start: 20051103
  3. RIBASPHERE [Suspect]
     Indication: HEPATITIS C
     Dosage: DF PO
     Route: 048
  4. ATIVAN [Concomitant]
  5. METFORMIN HYDROCHLORIDE [Concomitant]
  6. PROZAC [Concomitant]
  7. SEROQUEL [Concomitant]
  8. TRAZODONE HCL [Concomitant]
  9. ACETAMINOPHEN [Concomitant]
  10. ZETIA [Concomitant]

REACTIONS (11)
  - ALOPECIA [None]
  - ANAEMIA [None]
  - ANGER [None]
  - ASTHENIA [None]
  - DIARRHOEA [None]
  - DIZZINESS [None]
  - FATIGUE [None]
  - HOT FLUSH [None]
  - MOVEMENT DISORDER [None]
  - WEIGHT DECREASED [None]
  - WHITE BLOOD CELL COUNT DECREASED [None]
